FAERS Safety Report 13860846 (Version 1)
Quarter: 2017Q3

REPORT INFORMATION
  Report Type: Spontaneous
  Country: GR (occurrence: GR)
  Receive Date: 20170811
  Receipt Date: 20170811
  Transmission Date: 20171127
  Serious: Yes (Other)
  Sender: FDA-Public Use
  Company Number: PHHY2017GR116307

PATIENT
  Age: 33 Year
  Sex: Female

DRUGS (1)
  1. ESTRADIOL / NORETHINDRONE ACETATE [Suspect]
     Active Substance: ESTRADIOL\NORETHINDRONE ACETATE
     Indication: HYPOPITUITARISM
     Route: 065

REACTIONS (2)
  - Brain neoplasm malignant [Unknown]
  - Cerebral cyst [Unknown]
